FAERS Safety Report 9036731 (Version 2)
Quarter: 2013Q1

REPORT INFORMATION
  Report Type: Spontaneous
  Country: GB (occurrence: None)
  Receive Date: 20130114
  Receipt Date: 20130213
  Transmission Date: 20140127
  Serious: Yes (Hospitalization)
  Sender: FDA-Public Use
  Company Number: PET-0001-2012

PATIENT
  Age: 65 Year
  Sex: Male

DRUGS (1)
  1. METATRACE FDG (FLUORODEOXYGLUCOSE 18F) (FLURODEOXYGLUCOSE 18F),32-F-061212-2 [Suspect]
     Indication: POSITRON EMISSION TOMOGRAM
     Dosage: (395 MBQ)
     Route: 042
     Dates: start: 20121206, end: 20121206

REACTIONS (2)
  - Syncope [None]
  - Rash [None]
